FAERS Safety Report 18610627 (Version 1)
Quarter: 2020Q4

REPORT INFORMATION
  Report Type: Spontaneous
  Country: NP (occurrence: NP)
  Receive Date: 20201214
  Receipt Date: 20201214
  Transmission Date: 20210114
  Serious: Yes (Other)
  Sender: FDA-Public Use
  Company Number: NP-BAYER-2020-271296

PATIENT
  Age: 71 Year
  Sex: Male

DRUGS (1)
  1. MACROGOL 3350 [Suspect]
     Active Substance: POLYETHYLENE GLYCOL 3350
     Indication: BOWEL PREPARATION

REACTIONS (5)
  - Off label use [None]
  - Hyponatraemia [None]
  - Generalised tonic-clonic seizure [None]
  - Product use in unapproved indication [None]
  - Wrong technique in product usage process [None]
